FAERS Safety Report 4991077-3 (Version None)
Quarter: 2006Q2

REPORT INFORMATION
  Report Type: 
  Country: None (occurrence: None)
  Receive Date: 20060428
  Receipt Date: 20060413
  Transmission Date: 20061013
  Serious: Yes (Other)
  Sender: FDA-Public Use
  Company Number: 2006-BP-04246RO

PATIENT
  Age: 45 Year
  Sex: Male

DRUGS (2)
  1. LITHIUM CARBONATE [Suspect]
     Indication: BIPOLAR DISORDER
     Dosage: 300 MG BID (300 MG), PO
     Route: 048
  2. LEVOTHYROXINE SODIUM [Concomitant]

REACTIONS (5)
  - AUTOIMMUNE THYROIDITIS [None]
  - HYPOTHYROIDISM [None]
  - LABORATORY TEST ABNORMAL [None]
  - PAPILLARY THYROID CANCER [None]
  - THYROID GLAND CANCER [None]
